FAERS Safety Report 19073453 (Version 1)
Quarter: 2021Q1

REPORT INFORMATION
  Report Type: Spontaneous
  Country: US (occurrence: US)
  Receive Date: 20210330
  Receipt Date: 20210330
  Transmission Date: 20210420
  Serious: No
  Sender: FDA-Public Use
  Company Number: None

PATIENT

DRUGS (2)
  1. TRONVITE [Suspect]
     Active Substance: DIETARY SUPPLEMENT\FOLIC ACID\VITAMINS
  2. ZALVIT [Suspect]
     Active Substance: DIETARY SUPPLEMENT\FOLIC ACID\VITAMINS

REACTIONS (3)
  - Abdominal pain [None]
  - Product quality issue [None]
  - Blood folate increased [None]

NARRATIVE: CASE EVENT DATE: 20210302
